FAERS Safety Report 17048099 (Version 3)
Quarter: 2020Q1

REPORT INFORMATION
  Report Type: Spontaneous
  Country: US (occurrence: US)
  Receive Date: 20191119
  Receipt Date: 20200211
  Transmission Date: 20200409
  Serious: No
  Sender: FDA-Public Use
  Company Number: US-PFIZER INC-2019494818

PATIENT
  Age: 94 Year
  Sex: Female
  Weight: 52.15 kg

DRUGS (5)
  1. AMLODIPINE BESYLATE. [Concomitant]
     Active Substance: AMLODIPINE BESYLATE
     Dosage: 5 MG, 2X/DAY
  2. PROLIA [Suspect]
     Active Substance: DENOSUMAB
     Dosage: 1 ML, EVERY 6 MONTHS (60 MG/ML 1 ML INJECTION EVERY 6 MOS.)
  3. VIACTIV [CALCIUM] [Suspect]
     Active Substance: CALCIUM
     Dosage: UNK, 2X/DAY (500-500-40 MG-UNIT-MCQ)
  4. TYLENOL EXTRA STRENGTH [Concomitant]
     Active Substance: ACETAMINOPHEN
     Dosage: 1000 MG, 2X/DAY (STRENGTH 500 MG 2 TABLETS TWICE A DAY)
  5. XELJANZ [Suspect]
     Active Substance: TOFACITINIB CITRATE
     Dosage: 5 MG, 2X/DAY

REACTIONS (2)
  - Hypoacusis [Not Recovered/Not Resolved]
  - Musculoskeletal disorder [Not Recovered/Not Resolved]
